FAERS Safety Report 8729299 (Version 2)
Quarter: 2013Q3

REPORT INFORMATION
  Report Type: Spontaneous
  Country: US (occurrence: US)
  Receive Date: 20120817
  Receipt Date: 20130823
  Transmission Date: 20140515
  Serious: Yes (Hospitalization, Other)
  Sender: FDA-Public Use
  Company Number: US-BRISTOL-MYERS SQUIBB COMPANY-16666042

PATIENT
  Age: 52 Year
  Sex: Male
  Weight: 84 kg

DRUGS (4)
  1. SPRYCEL [Suspect]
     Indication: CHRONIC MYELOID LEUKAEMIA
     Dosage: START25JUN12 INTER ON 13SEP12 REST ON 2OCT12(70MG) ONCE PER DY EXP DT:12NV13
     Route: 048
     Dates: start: 20120604
  2. XANAX [Concomitant]
  3. PROCHLORPERAZINE [Concomitant]
  4. PRILOSEC [Concomitant]

REACTIONS (9)
  - Pancreatitis [Unknown]
  - Back pain [Unknown]
  - Headache [Unknown]
  - Nausea [Not Recovered/Not Resolved]
  - Dizziness [Unknown]
  - Fatigue [Not Recovered/Not Resolved]
  - Anaemia [Not Recovered/Not Resolved]
  - Asthenia [Not Recovered/Not Resolved]
  - Arthralgia [Recovered/Resolved]
